FAERS Safety Report 17725428 (Version 4)
Quarter: 2021Q1

REPORT INFORMATION
  Report Type: Report from Study
  Country: AT (occurrence: AT)
  Receive Date: 20200429
  Receipt Date: 20210311
  Transmission Date: 20210419
  Serious: Yes (Hospitalization)
  Sender: FDA-Public Use
  Company Number: AT-TAIHO ONCOLOGY  INC-IM-2020-00406

PATIENT
  Age: 73 Year
  Sex: Male
  Weight: 54.8 kg

DRUGS (22)
  1. DRONABINOL. [Concomitant]
     Active Substance: DRONABINOL
     Indication: WEIGHT DECREASED
     Dosage: 2 GTT, BID
     Route: 048
     Dates: start: 202002, end: 20200301
  2. CITALOPRAM HYDROBROMIDE. [Concomitant]
     Active Substance: CITALOPRAM HYDROBROMIDE
     Indication: DEPRESSION
     Dosage: 20 MG, QD
     Route: 048
     Dates: start: 201906
  3. LONSURF [Suspect]
     Active Substance: TIPIRACIL HYDROCHLORIDE\TRIFLURIDINE
     Indication: ADENOCARCINOMA OF COLON
     Dosage: 55 MG (35 MG/M2) BID, ON DAYS 1?5 AND 8?12 OF EACH 28?DAY CYCLE
     Route: 048
     Dates: start: 20191113, end: 20191124
  4. LONSURF [Suspect]
     Active Substance: TIPIRACIL HYDROCHLORIDE\TRIFLURIDINE
     Dosage: 55 MG (35 MG/M2) BID, ON DAYS 1?5 AND 8?12 OF EACH 28?DAY CYCLE
     Route: 048
     Dates: start: 20191219, end: 20191230
  5. LONSURF [Suspect]
     Active Substance: TIPIRACIL HYDROCHLORIDE\TRIFLURIDINE
     Dosage: 55 MG (35 MG/M2) BID, ON DAYS 1?5 AND 8?12 OF EACH 28?DAY CYCLE
     Route: 048
     Dates: start: 20200120, end: 20200228
  6. ZARZIO [Concomitant]
     Active Substance: FILGRASTIM
     Indication: NEUTROPHIL COUNT DECREASED
     Dosage: 30 UNK, PRN
     Route: 051
     Dates: start: 20191216, end: 20191216
  7. BEVACIZUMAB. [Suspect]
     Active Substance: BEVACIZUMAB
     Dosage: 275.0 MG (5 MG/KG), IV, ON DAYS 1 AND 15 OF EACH 28 DAY CYCLE
     Route: 042
     Dates: start: 20191219, end: 20200102
  8. BEVACIZUMAB. [Suspect]
     Active Substance: BEVACIZUMAB
     Dosage: 260.0 MG (5 MG/KG), IV, ON DAYS 1 AND 15 OF EACH 28 DAY CYCLE
     Route: 042
     Dates: start: 20200504, end: 20200603
  9. DRONABINOL. [Concomitant]
     Active Substance: DRONABINOL
     Indication: DECREASED APPETITE
     Dosage: 3 GTT, QD
     Route: 048
     Dates: start: 20200102, end: 20200120
  10. DRONABINOL. [Concomitant]
     Active Substance: DRONABINOL
     Dosage: 3 GTT, TID
     Route: 048
     Dates: start: 20200302
  11. MEXALEN [Concomitant]
     Active Substance: ACETAMINOPHEN
     Indication: PROPHYLAXIS
     Dosage: 500 MG, PRN
     Route: 048
     Dates: start: 20200104
  12. BEVACIZUMAB. [Suspect]
     Active Substance: BEVACIZUMAB
     Indication: ADENOCARCINOMA OF COLON
     Dosage: 274.0 MG (5 MG/KG), IV, ON DAYS 1 AND 15 OF EACH 28 DAY CYCLE
     Route: 042
     Dates: start: 20191113, end: 20191127
  13. ZARZIO [Concomitant]
     Active Substance: FILGRASTIM
     Dosage: 30 IU, PRN
     Route: 051
     Dates: start: 20200104
  14. MOLAXOLE [Concomitant]
     Active Substance: POLYETHYLENE GLYCOL 3350\POTASSIUM CHLORIDE\SODIUM BICARBONATE\SODIUM CHLORIDE
     Indication: CONSTIPATION PROPHYLAXIS
     Dosage: 1 DF, PRN
     Route: 048
     Dates: start: 20191113
  15. BEVACIZUMAB. [Suspect]
     Active Substance: BEVACIZUMAB
     Dosage: 282.5 MG (5 MG/KG), IV, ON DAYS 1 AND 15 OF EACH 28 DAY CYCLE
     Route: 042
     Dates: start: 20200120, end: 20200302
  16. BEVACIZUMAB. [Suspect]
     Active Substance: BEVACIZUMAB
     Dosage: 275.0 MG (5 MG/KG), IV, ON DAYS 1 AND 15 OF EACH 28 DAY CYCLE
     Route: 042
     Dates: start: 20200406, end: 20200406
  17. PANTOLOC [Concomitant]
     Active Substance: PANTOPRAZOLE SODIUM
     Indication: GASTRITIS PROPHYLAXIS
     Dosage: 40 MG, QD
     Route: 048
     Dates: start: 20191113, end: 20200419
  18. CEOLAT [Concomitant]
     Indication: PROPHYLAXIS OF NAUSEA AND VOMITING
     Dosage: 10 ML, PRN
     Route: 048
     Dates: start: 20191113
  19. LONSURF [Suspect]
     Active Substance: TIPIRACIL HYDROCHLORIDE\TRIFLURIDINE
     Dosage: 50 MG (30 MG/M2) BID, ON DAYS 1?5 AND 8?12 OF EACH 28?DAY CYCLE
     Route: 048
     Dates: start: 20200406, end: 20200419
  20. LONSURF [Suspect]
     Active Substance: TIPIRACIL HYDROCHLORIDE\TRIFLURIDINE
     Dosage: 50 MG (30 MG/M2) BID, ON DAYS 1?5 AND 8?12 OF EACH 28?DAY CYCLE
     Route: 048
     Dates: start: 20200504, end: 20200614
  21. HADENSA [Concomitant]
     Indication: HAEMORRHOIDS
     Dosage: 1 DF, PRN
     Route: 062
     Dates: start: 20200330
  22. PANTOLOC [Concomitant]
     Active Substance: PANTOPRAZOLE SODIUM
     Indication: ABDOMINAL PAIN UPPER
     Dosage: 40 MG, BID
     Route: 048
     Dates: start: 20200420

REACTIONS (1)
  - Gastrointestinal pain [Recovered/Resolved]

NARRATIVE: CASE EVENT DATE: 20200413
